FAERS Safety Report 7172611-4 (Version None)
Quarter: 2010Q4

REPORT INFORMATION
  Report Type: 
  Country: None (occurrence: None)
  Receive Date: 20101217
  Receipt Date: 20100211
  Transmission Date: 20110411
  Serious: No
  Sender: FDA-Public Use
  Company Number: US-AMGEN-KDL392280

PATIENT

DRUGS (15)
  1. ENBREL [Suspect]
     Indication: PRODUCT USED FOR UNKNOWN INDICATION
     Dosage: 50 MG, QWK
     Route: 058
  2. ESTRADIOL [Concomitant]
     Dosage: 2 MG, UNK
  3. ESTROGENS CONJUGATED [Concomitant]
     Dosage: .625 MG, UNK
  4. PREDNISONE [Concomitant]
     Dosage: 5 MG, UNK
  5. ELMIRON [Concomitant]
     Dosage: 100 MG, UNK
  6. CALCITONIN SALMON [Concomitant]
     Dosage: UNK UNK, UNK
  7. ESTRADIOL, NORETHINDRONE ACETATE [Concomitant]
  8. ATENOLOL [Concomitant]
     Dosage: 25 MG, UNK
  9. NABUMETONE [Concomitant]
     Dosage: 500 MG, UNK
  10. OMEPRAZOLE [Concomitant]
     Dosage: 20 MG, UNK
  11. FOLIC ACID [Concomitant]
     Dosage: 1 MG, UNK
  12. FLUTICASONE PROPIONATE [Concomitant]
     Dosage: UNK UNK, UNK
  13. CALCIUM CARBONATE/VITAMIN D [Concomitant]
     Dosage: 600 MG, UNK
  14. VESICARE [Concomitant]
     Dosage: 5 MG, UNK
  15. MAGNESIUM OXIDE [Concomitant]
     Dosage: 400 MG, UNK

REACTIONS (2)
  - GASTROENTERITIS VIRAL [None]
  - THROAT IRRITATION [None]
